FAERS Safety Report 9207745 (Version 1)
Quarter: 2013Q2

REPORT INFORMATION
  Report Type: Spontaneous
  Country: US (occurrence: US)
  Receive Date: 20130403
  Receipt Date: 20130403
  Transmission Date: 20140414
  Serious: Yes (Hospitalization)
  Sender: FDA-Public Use
  Company Number: US-GLAXOSMITHKLINE-A0776712A

PATIENT
  Age: 70 Year
  Sex: Female

DRUGS (1)
  1. AVANDIA [Suspect]
     Indication: TYPE 2 DIABETES MELLITUS
     Dosage: 4MG TWICE PER DAY
     Route: 048
     Dates: start: 2003, end: 2005

REACTIONS (5)
  - Cerebrovascular accident [Recovering/Resolving]
  - Myocardial infarction [Unknown]
  - Cardiac failure congestive [Unknown]
  - Atrioventricular block [Unknown]
  - Dialysis [Unknown]
